FAERS Safety Report 5327766-0 (Version None)
Quarter: 2007Q2

REPORT INFORMATION
  Report Type: 
  Country: None (occurrence: None)
  Receive Date: 20070517
  Receipt Date: 20070514
  Transmission Date: 20071010
  Serious: Yes (Hospitalization)
  Sender: FDA-Public Use
  Company Number: PHEH2007US07327

PATIENT
  Age: 53 Year
  Sex: Female

DRUGS (13)
  1. RISPERDAL [Concomitant]
  2. FOLIC ACID [Concomitant]
  3. BUSPAR [Concomitant]
  4. LISINOPRIL [Concomitant]
  5. THIAMINE [Concomitant]
  6. CENTRUM SILVER [Concomitant]
  7. AMITRIPTYLINE HCL [Concomitant]
  8. ZELNORM [Suspect]
     Indication: IRRITABLE BOWEL SYNDROME
     Dosage: 6 MG, BID, PRN
     Route: 048
     Dates: end: 20070512
  9. VYTORIN [Concomitant]
  10. CLONIDINE [Concomitant]
  11. AVANDAMET [Concomitant]
  12. GEMFIBROZIL [Concomitant]
  13. LEXAPRO [Concomitant]

REACTIONS (2)
  - CARDIAC DISORDER [None]
  - CHEST PAIN [None]
